FAERS Safety Report 17843695 (Version 1)
Quarter: 2020Q2

REPORT INFORMATION
  Report Type: Spontaneous
  Country: CN (occurrence: CN)
  Receive Date: 20200531
  Receipt Date: 20200531
  Transmission Date: 20200714
  Serious: Yes (Other)
  Sender: FDA-Public Use
  Company Number: CN-ROCHE-2608814

PATIENT
  Age: 51 Year
  Sex: Female
  Weight: 65 kg

DRUGS (7)
  1. PACLITAXEL. [Concomitant]
     Active Substance: PACLITAXEL
     Indication: INFLAMMATORY CARCINOMA OF BREAST STAGE III
     Dosage: ECTH REGIMEN, TH (ONE WEEK)
     Route: 065
     Dates: start: 20181225
  2. HERCEPTIN [Suspect]
     Active Substance: TRASTUZUMAB
     Indication: INFLAMMATORY CARCINOMA OF BREAST STAGE III
     Dosage: ECTH REGIMEN, INITIAL DOSE 4 MG/KG, MAINTENANCE DOSE 2 MG/KG
     Route: 065
     Dates: start: 20181225
  3. HERCEPTIN [Suspect]
     Active Substance: TRASTUZUMAB
     Dosage: THP REGIMEN FOR 4 CYCLES
     Route: 065
     Dates: start: 20190519
  4. PERJETA [Suspect]
     Active Substance: PERTUZUMAB
     Indication: INFLAMMATORY CARCINOMA OF BREAST STAGE III
     Dosage: THP REGIMEN FOR 4 CYCLES, INITIAL DOSE 840 MG, MAINTENANCE DOSE 420 MG
     Route: 065
     Dates: start: 20190519
  5. PACLITAXEL. [Concomitant]
     Active Substance: PACLITAXEL
     Dosage: THP REGIMEN FOR 4 CYCLES
     Route: 065
     Dates: start: 20190519
  6. CYCLOPHOSPHAMIDE. [Concomitant]
     Active Substance: CYCLOPHOSPHAMIDE
     Indication: INFLAMMATORY CARCINOMA OF BREAST STAGE III
     Dosage: ECTH REGIMEN, ECX4 (3 WEEKS)
     Route: 065
     Dates: start: 20181225
  7. EPIRUBICIN [Concomitant]
     Active Substance: EPIRUBICIN
     Indication: INFLAMMATORY CARCINOMA OF BREAST STAGE III
     Dosage: ECTH REGIMEN, ECX4 (3 WEEKS)
     Route: 065
     Dates: start: 20181225

REACTIONS (1)
  - Bone marrow failure [Unknown]
